FAERS Safety Report 13179176 (Version 1)
Quarter: 2017Q1

REPORT INFORMATION
  Report Type: Spontaneous
  Country: US (occurrence: US)
  Receive Date: 20170202
  Receipt Date: 20170202
  Transmission Date: 20170428
  Serious: Yes (Hospitalization)
  Sender: FDA-Public Use
  Company Number: US-ASTRAZENECA-2017SE11283

PATIENT
  Age: 821 Month
  Sex: Male
  Weight: 61.7 kg

DRUGS (4)
  1. OVAIR [Concomitant]
  2. LOTS OF MED [Concomitant]
  3. TUDORZA PRESSAIR [Suspect]
     Active Substance: ACLIDINIUM BROMIDE
     Route: 055
     Dates: start: 2014
  4. SYMBICORT [Suspect]
     Active Substance: BUDESONIDE\FORMOTEROL FUMARATE DIHYDRATE
     Dosage: 160-4.5 ONE PUFF TWICE A DAY
     Route: 055

REACTIONS (5)
  - Pneumonia [Recovered/Resolved]
  - Device malfunction [Unknown]
  - Device failure [Unknown]
  - Dyspnoea [Not Recovered/Not Resolved]
  - Drug dose omission [Unknown]

NARRATIVE: CASE EVENT DATE: 201602
